FAERS Safety Report 7468205-3 (Version None)
Quarter: 2011Q2

REPORT INFORMATION
  Report Type: 
  Country: None (occurrence: None)
  Receive Date: 20110509
  Receipt Date: 20110428
  Transmission Date: 20111010
  Serious: Yes (Other)
  Sender: FDA-Public Use
  Company Number: PHHY2011US31170

PATIENT
  Sex: Female
  Weight: 68.027 kg

DRUGS (8)
  1. LOSARTAN [Concomitant]
     Dosage: 50 MG, QD
  2. ALDACTONE [Concomitant]
  3. SYNTHROID [Concomitant]
  4. AMLODIPINE BESYLATE [Concomitant]
     Dosage: 5 MG, QD
  5. VITAMIN D [Concomitant]
  6. WARFARIN [Concomitant]
     Dosage: 5 MG, AS NEEDED
  7. GLEEVEC [Suspect]
     Indication: CHRONIC MYELOID LEUKAEMIA
     Dosage: 300 MG, DAILY
     Route: 048
     Dates: start: 20001001
  8. ASACOL [Concomitant]
     Dosage: 400 MG, SIX A DAY

REACTIONS (4)
  - BALANCE DISORDER [None]
  - ASTHENIA [None]
  - PELVIC FRACTURE [None]
  - FALL [None]
